FAERS Safety Report 7282679-2 (Version None)
Quarter: 2011Q1

REPORT INFORMATION
  Report Type: 
  Country: None (occurrence: None)
  Receive Date: 20110209
  Receipt Date: 20110203
  Transmission Date: 20110831
  Serious: Yes (Hospitalization)
  Sender: FDA-Public Use
  Company Number: DK-JNJFOC-20110201262

PATIENT
  Sex: Female
  Weight: 46 kg

DRUGS (25)
  1. PREDNISONE [Suspect]
     Indication: DIFFUSE LARGE B-CELL LYMPHOMA
     Dosage: CYCLE 2
     Route: 048
  2. RITUXIMAB [Suspect]
     Dosage: CYCLE 3
     Route: 042
  3. VINCRISTINE [Suspect]
     Dosage: CYCLE 3
     Route: 042
  4. CYCLOPHOSPHAMIDE [Suspect]
     Dosage: CYCLE 2
     Route: 042
  5. PREDNISONE [Suspect]
     Dosage: CYCLE 4
     Route: 048
  6. RITUXIMAB [Suspect]
     Indication: DIFFUSE LARGE B-CELL LYMPHOMA
     Dosage: CYCLE 2
     Route: 042
  7. NEUPOGEN [Suspect]
     Indication: DIFFUSE LARGE B-CELL LYMPHOMA
     Dosage: CYCLE 1
     Route: 058
  8. CAELYX [Suspect]
     Dosage: CYCLE 2
     Route: 042
  9. RITUXIMAB [Suspect]
     Dosage: CYCLE 1
     Route: 042
  10. VINCRISTINE [Suspect]
     Indication: DIFFUSE LARGE B-CELL LYMPHOMA
     Dosage: CYCLE 1
     Route: 042
  11. VINCRISTINE [Suspect]
     Dosage: CYCLE 2
     Route: 042
  12. CAELYX [Suspect]
     Dosage: CYCLE 4
     Route: 042
  13. CYCLOPHOSPHAMIDE [Suspect]
     Indication: DIFFUSE LARGE B-CELL LYMPHOMA
     Dosage: CYCLE 3
     Route: 042
  14. CYCLOPHOSPHAMIDE [Suspect]
     Dosage: CYCLE 1
     Route: 042
  15. NEUPOGEN [Suspect]
     Dosage: CYCLE 3
     Route: 058
  16. NEUPOGEN [Suspect]
     Dosage: CYCLE 2
     Route: 058
  17. PREDNISONE [Suspect]
     Dosage: CYCLE 3
     Route: 048
  18. VINCRISTINE [Suspect]
     Dosage: CYCLE 4
     Route: 042
  19. CAELYX [Suspect]
     Dosage: CYCLE 3
     Route: 042
  20. PREDNISONE [Suspect]
     Dosage: CYCLE 1
     Route: 048
  21. CAELYX [Suspect]
     Indication: DIFFUSE LARGE B-CELL LYMPHOMA
     Dosage: CYCLE 1
     Route: 042
  22. NEUPOGEN [Suspect]
     Route: 058
  23. RITUXIMAB [Suspect]
     Dosage: CYCLE 4
     Route: 042
  24. CYCLOPHOSPHAMIDE [Suspect]
     Dosage: CYCLE 4
     Route: 042
  25. ALLOPURINOL [Concomitant]
     Indication: PROPHYLAXIS
     Route: 048

REACTIONS (5)
  - MEMORY IMPAIRMENT [None]
  - ANAEMIA [None]
  - DEHYDRATION [None]
  - CONFUSIONAL STATE [None]
  - DIARRHOEA [None]
